FAERS Safety Report 25806520 (Version 1)
Quarter: 2025Q3

REPORT INFORMATION
  Report Type: Spontaneous
  Country: CA (occurrence: CA)
  Receive Date: 20250916
  Receipt Date: 20250916
  Transmission Date: 20251021
  Serious: Yes (Other)
  Sender: TEVA
  Company Number: CA-TEVA-VS-3372143

PATIENT
  Age: 74 Year
  Sex: Female

DRUGS (1)
  1. PACLITAXEL [Suspect]
     Active Substance: PACLITAXEL
     Indication: Adenocarcinoma
     Route: 065

REACTIONS (8)
  - Chest pain [Unknown]
  - Swelling of eyelid [Unknown]
  - Back pain [Unknown]
  - Hypotension [Unknown]
  - Vomiting [Unknown]
  - Flushing [Unknown]
  - Cough [Unknown]
  - Nausea [Unknown]
